FAERS Safety Report 7361332-0 (Version None)
Quarter: 2011Q1

REPORT INFORMATION
  Report Type: 
  Country: None (occurrence: None)
  Receive Date: 20110318
  Receipt Date: 20110301
  Transmission Date: 20110831
  Serious: Yes (Other)
  Sender: FDA-Public Use
  Company Number: B0704597A

PATIENT
  Sex: Male

DRUGS (1)
  1. FLIXOTIDE [Suspect]
     Route: 055
     Dates: start: 20110201

REACTIONS (2)
  - MYDRIASIS [None]
  - INTRAOCULAR PRESSURE INCREASED [None]
